FAERS Safety Report 8073094-2 (Version None)
Quarter: 2012Q1

REPORT INFORMATION
  Report Type: 
  Country: None (occurrence: None)
  Receive Date: 20120126
  Receipt Date: 20120123
  Transmission Date: 20120608
  Serious: Yes (Hospitalization)
  Sender: FDA-Public Use
  Company Number: US-BAYER-2012-007586

PATIENT
  Age: 65 Year
  Sex: Female

DRUGS (5)
  1. BETASERON [Suspect]
     Indication: MULTIPLE SCLEROSIS
     Dosage: 0.3 MG, QOD
     Route: 058
     Dates: start: 20090701, end: 20111201
  2. ADDERALL 5 [Concomitant]
  3. CELEXA [Concomitant]
  4. BACLOFEN [Concomitant]
  5. CHEMOTHERAPEUTICS NOS [Concomitant]

REACTIONS (1)
  - INFECTION [None]
